FAERS Safety Report 8302486 (Version 3)
Quarter: 2012Q4

REPORT INFORMATION
  Report Type: Report from Study
  Country: FR (occurrence: FR)
  Receive Date: 20111220
  Receipt Date: 20120912
  Transmission Date: 20130627
  Serious: Yes (Hospitalization)
  Sender: FDA-Public Use
  Company Number: FR-CELGENEUS-056-21880-11120673

PATIENT
  Age: 65 Year
  Sex: Male

DRUGS (9)
  1. REVLIMID [Suspect]
     Indication: IGG MYELOMA
     Dosage: 25 Milligram
     Route: 048
     Dates: start: 20111024
  2. DEXAMETHASONE [Suspect]
     Indication: IGG MYELOMA
     Dosage: 20 Milligram
     Route: 065
     Dates: start: 20111024
  3. DEXAMETHASONE [Suspect]
     Dosage: dose reduced
     Route: 065
  4. BORTEZOMIB [Suspect]
     Indication: IGG MYELOMA
     Dosage: 2.5 Milligram
     Route: 065
     Dates: start: 20111024
  5. BORTEZOMIB [Suspect]
     Dosage: 2.4 Milligram
     Route: 065
     Dates: start: 20111222
  6. LOVENOX [Concomitant]
     Indication: PROPHYLAXIS
     Dosage: 4000 IU (International Unit)
     Route: 058
     Dates: start: 20111024
  7. LOVENOX [Concomitant]
     Route: 058
     Dates: start: 20111129, end: 20111130
  8. LOVENOX [Concomitant]
     Route: 058
     Dates: start: 20111130
  9. NEODEX [Concomitant]
     Indication: DRUG USE FOR UNKNOWN INDICATION
     Route: 065
     Dates: start: 20111222

REACTIONS (2)
  - Lung disorder [Recovered/Resolved]
  - Diarrhoea [Recovered/Resolved]
